FAERS Safety Report 6973217-X (Version None)
Quarter: 2010Q3

REPORT INFORMATION
  Report Type: 
  Country: None (occurrence: None)
  Receive Date: 20100909
  Receipt Date: 20100902
  Transmission Date: 20110219
  Serious: Yes (Hospitalization)
  Sender: FDA-Public Use
  Company Number: GB-ELI_LILLY_AND_COMPANY-GB201009000892

PATIENT
  Age: 40 Year
  Sex: Male

DRUGS (2)
  1. HUMALOG [Suspect]
  2. LANTUS [Concomitant]

REACTIONS (1)
  - BLOOD GLUCOSE INCREASED [None]
